FAERS Safety Report 8520218-6 (Version None)
Quarter: 2012Q3

REPORT INFORMATION
  Report Type: 
  Country: None (occurrence: None)
  Receive Date: 20120719
  Receipt Date: 20120704
  Transmission Date: 20120928
  Serious: Yes (Other)
  Sender: FDA-Public Use
  Company Number: SE-RANBAXY-2012R1-58162

PATIENT
  Age: 21 Year
  Sex: Female

DRUGS (1)
  1. FLUOXETINE HCL [Suspect]
     Indication: PRODUCT USED FOR UNKNOWN INDICATION
     Route: 065

REACTIONS (5)
  - PHOTOPHOBIA [None]
  - MYALGIA [None]
  - PRURITUS [None]
  - RASH ERYTHEMATOUS [None]
  - MUSCLE CONTRACTIONS INVOLUNTARY [None]
